FAERS Safety Report 8275370-7 (Version None)
Quarter: 2012Q2

REPORT INFORMATION
  Report Type: 
  Country: None (occurrence: None)
  Receive Date: 20120411
  Receipt Date: 20120404
  Transmission Date: 20120825
  Serious: Yes (Other)
  Sender: FDA-Public Use
  Company Number: US-BAYER-201013007NA

PATIENT
  Age: 61 Year
  Sex: Male
  Weight: 160.91 kg

DRUGS (27)
  1. WARFARIN SODIUM [Concomitant]
     Dates: start: 20020101
  2. BEXTRA [Concomitant]
  3. MAGNEVIST [Suspect]
     Indication: NUCLEAR MAGNETIC RESONANCE IMAGING ABDOMINAL
     Dates: start: 20010302, end: 20010302
  4. MAGNEVIST [Suspect]
     Indication: NUCLEAR MAGNETIC RESONANCE IMAGING BRAIN
  5. CELEBREX [Concomitant]
  6. PRILOSEC [Concomitant]
  7. DYNACIRC [Concomitant]
  8. MAGNEVIST [Suspect]
     Indication: RENAL MASS
     Dosage: UNK UNK, ONCE
     Route: 042
     Dates: start: 20040329, end: 20040329
  9. TESTOSTERONE [Concomitant]
  10. OMNISCAN [Suspect]
     Indication: IMAGING PROCEDURE
  11. VITAMIN B12 NOS [Concomitant]
  12. OPTIMARK [Suspect]
     Indication: BACK PAIN
  13. PROHANCE [Suspect]
     Indication: IMAGING PROCEDURE
  14. OPTIMARK [Suspect]
     Indication: NUCLEAR MAGNETIC RESONANCE IMAGING
     Dates: start: 20060222, end: 20060222
  15. IBUPROFEN [Concomitant]
  16. FLOMAX [Concomitant]
  17. WATER PURIFIED [Concomitant]
  18. LORTAB [Concomitant]
  19. VIAGRA [Concomitant]
  20. NTP [Concomitant]
  21. HYDROCHLOROTHIAZIDE [Concomitant]
  22. DOVONEX [Concomitant]
  23. MULTIHANCE [Suspect]
     Indication: IMAGING PROCEDURE
  24. AVAPRO [Concomitant]
     Dates: start: 20030101, end: 20060615
  25. PREVACID [Concomitant]
  26. VITAMIN B6 [Concomitant]
  27. ASPIRIN [Concomitant]

REACTIONS (18)
  - PAIN IN EXTREMITY [None]
  - HYPOAESTHESIA [None]
  - SCAR [None]
  - GENERAL PHYSICAL HEALTH DETERIORATION [None]
  - VISUAL ACUITY REDUCED [None]
  - TREMOR [None]
  - SKIN INDURATION [None]
  - THROMBOSIS [None]
  - ARTHRALGIA [None]
  - SKIN HYPERTROPHY [None]
  - ANXIETY [None]
  - OEDEMA PERIPHERAL [None]
  - HYPERHIDROSIS [None]
  - NEPHROGENIC SYSTEMIC FIBROSIS [None]
  - DERMATITIS [None]
  - SKIN HYPERPIGMENTATION [None]
  - DEFORMITY [None]
  - BACK PAIN [None]
